FAERS Safety Report 5389375-7 (Version None)
Quarter: 2007Q3

REPORT INFORMATION
  Report Type: 
  Country: None (occurrence: None)
  Receive Date: 20070713
  Receipt Date: 20070713
  Transmission Date: 20080115
  Serious: Yes (Hospitalization)
  Sender: FDA-Public Use
  Company Number: None

PATIENT
  Sex: Male
  Weight: 84.2 kg

DRUGS (4)
  1. BORTEZOMIB-6/20-2.6MG+6/23-2.6MGIV [Suspect]
     Indication: MANTLE CELL LYMPHOMA
  2. RITUXAN [Suspect]
     Indication: MANTLE CELL LYMPHOMA
  3. CYTOXAN [Suspect]
  4. DOXORUBICIN HCL [Suspect]

REACTIONS (1)
  - FEBRILE NEUTROPENIA [None]
